FAERS Safety Report 6767002-1 (Version None)
Quarter: 2010Q2

REPORT INFORMATION
  Report Type: 
  Country: None (occurrence: None)
  Receive Date: 20100611
  Receipt Date: 20100531
  Transmission Date: 20101027
  Serious: Yes (Hospitalization)
  Sender: FDA-Public Use
  Company Number: ES-ELI_LILLY_AND_COMPANY-ES201006000120

PATIENT
  Sex: Female
  Weight: 68 kg

DRUGS (3)
  1. FORTEO [Suspect]
     Indication: OSTEOPOROSIS
     Dosage: 20 UG, DAILY (1/D)
     Route: 058
     Dates: start: 20100508, end: 20100527
  2. SINTROM [Concomitant]
     Indication: BLOOD URIC ACID
     Dosage: UNK, UNKNOWN
     Route: 048
  3. ANTIHYPERTENSIVES [Concomitant]
     Indication: HYPERTENSION
     Dosage: UNK, UNKNOWN
     Route: 048

REACTIONS (5)
  - CARDIAC FAILURE [None]
  - LOCALISED OEDEMA [None]
  - OEDEMA PERIPHERAL [None]
  - OLIGURIA [None]
  - PULMONARY OEDEMA [None]
